FAERS Safety Report 10380891 (Version 1)
Quarter: 2014Q1

REPORT INFORMATION
  Report Type: Spontaneous
  Country: US (occurrence: None)
  Receive Date: 20140306
  Receipt Date: 20140306
  Transmission Date: 20141002
  Serious: Yes (Hospitalization, Other)
  Sender: FDA-Public Use
  Company Number: 163-21880-13072361

PATIENT
  Age: 72 Year
  Sex: Female

DRUGS (13)
  1. REVLIMID (LENALIDOMIDE) [Suspect]
     Indication: PLASMA CELL MYELOMA
     Route: 048
     Dates: start: 201112, end: 20130613
  2. LOVASTATIN (LOVASTATIN) [Concomitant]
  3. METFORMIN (METFORMIN HYDROCHLORIDE) [Concomitant]
  4. METOPROLOL SUCCINATE (METOPROLOL SUCCINATE) [Concomitant]
  5. GLIPIZIDE (GLIPIZIDE) [Concomitant]
  6. AMITRIPTYLINE HCL (AMITRIPTYLINE HYDROCHLORIDE) [Concomitant]
  7. FERROUS SULFATE (FERROUS SULFATE) [Concomitant]
  8. LOSARTAN POTASSIUM (LOSARTAN POTASSIUM) [Concomitant]
  9. ASPIRIN (ACETYLSALICYLIC ACID) [Concomitant]
  10. FOLIC ACID (FOLIC ACID) [Concomitant]
  11. LEVOXYL (LEVOTHYROXINE SODIUIM) [Concomitant]
  12. SEROQUEL (QUETIAPINE FUMARATE) [Concomitant]
  13. ARANESP (DARBEPOETIN ALFA) [Concomitant]

REACTIONS (3)
  - Deep vein thrombosis [None]
  - Weight decreased [None]
  - Bone marrow failure [None]
